FAERS Safety Report 23453054 (Version 1)
Quarter: 2024Q1

REPORT INFORMATION
  Report Type: Spontaneous
  Country: IT (occurrence: IT)
  Receive Date: 20240129
  Receipt Date: 20240129
  Transmission Date: 20240410
  Serious: Yes (Death, Congenital Anomaly, Other)
  Sender: FDA-Public Use
  Company Number: IT-SUN PHARMACEUTICAL INDUSTRIES LTD-2024R1-429003

PATIENT

DRUGS (1)
  1. VALACYCLOVIR [Suspect]
     Active Substance: VALACYCLOVIR HYDROCHLORIDE
     Indication: Product used for unknown indication
     Dosage: UNK
     Route: 064

REACTIONS (4)
  - Foetal exposure during pregnancy [Unknown]
  - Pulmonary hypertension [Fatal]
  - Congenital cytomegalovirus infection [Fatal]
  - Hyperplasia [Fatal]
